FAERS Safety Report 9771932 (Version 1)
Quarter: 2013Q4

REPORT INFORMATION
  Report Type: Spontaneous
  Country: US (occurrence: US)
  Receive Date: 20131219
  Receipt Date: 20131219
  Transmission Date: 20140711
  Serious: No
  Sender: FDA-Public Use
  Company Number: US-009507513-1312USA007847

PATIENT
  Age: 47 Year
  Sex: Female
  Weight: 49.89 kg

DRUGS (1)
  1. NUVARING [Suspect]
     Indication: CONTRACEPTION
     Dosage: FREQUENCY: 3 WEEKS IN 1 WEEK RING FREE BREAK.
     Route: 067
     Dates: start: 20131208

REACTIONS (2)
  - Vaginal haemorrhage [Unknown]
  - Vulvovaginal discomfort [Unknown]
